FAERS Safety Report 12411320 (Version 1)
Quarter: 2016Q2

REPORT INFORMATION
  Report Type: Spontaneous
  Country: US (occurrence: None)
  Receive Date: 20160526
  Receipt Date: 20160526
  Transmission Date: 20160815
  Serious: No
  Sender: FDA-Public Use
  Company Number: None

PATIENT
  Age: 44 Year
  Sex: Female
  Weight: 65.32 kg

DRUGS (1)
  1. MULTIHANCE [Suspect]
     Active Substance: GADOBENATE DIMEGLUMINE
     Dates: start: 20160518

REACTIONS (4)
  - Eyelid oedema [None]
  - Post procedural complication [None]
  - Dyspnoea [None]
  - Pharyngeal oedema [None]

NARRATIVE: CASE EVENT DATE: 20160518
